FAERS Safety Report 5899881-4 (Version None)
Quarter: 2008Q3

REPORT INFORMATION
  Report Type: 
  Country: None (occurrence: None)
  Receive Date: 20080925
  Receipt Date: 20080925
  Transmission Date: 20090109
  Serious: Yes (Other)
  Sender: FDA-Public Use
  Company Number: None

PATIENT
  Sex: Female
  Weight: 86.1834 kg

DRUGS (1)
  1. DOSTINEX [Suspect]
     Indication: PROLACTINOMA
     Dosage: 3- .5MG PILLS TWICE A WEEK PO
     Route: 048
     Dates: start: 20050705, end: 20080925

REACTIONS (4)
  - ABNORMAL BEHAVIOUR [None]
  - BANKRUPTCY [None]
  - GAMBLING [None]
  - LOSS OF EMPLOYMENT [None]
